APPROVED DRUG PRODUCT: VIGABATRIN
Active Ingredient: VIGABATRIN
Strength: 500MG/PACKET
Dosage Form/Route: FOR SOLUTION;ORAL
Application: A213469 | Product #001
Applicant: GRANULES PHARMACEUTICALS INC
Approved: Apr 24, 2020 | RLD: No | RS: No | Type: DISCN